FAERS Safety Report 21015551 (Version 1)
Quarter: 2022Q3

REPORT INFORMATION
  Report Type: Spontaneous
  Country: NI (occurrence: NI)
  Receive Date: 20220628
  Receipt Date: 20220628
  Transmission Date: 20221026
  Serious: Yes (Death, Other)
  Sender: FDA-Public Use
  Company Number: NI-NOVARTISPH-NVSC2022NI146965

PATIENT
  Age: 86 Year
  Sex: Male

DRUGS (1)
  1. GLIVEC [Suspect]
     Active Substance: IMATINIB MESYLATE
     Indication: Chronic myeloid leukaemia
     Dosage: 400 MG (1X400 MG TABLET
     Route: 065

REACTIONS (2)
  - Cardiomegaly [Fatal]
  - Condition aggravated [Unknown]

NARRATIVE: CASE EVENT DATE: 20220601
